FAERS Safety Report 6636077-2 (Version None)
Quarter: 2010Q1

REPORT INFORMATION
  Report Type: 
  Country: None (occurrence: None)
  Receive Date: 20100225
  Receipt Date: 20081123
  Transmission Date: 20100710
  Serious: Yes (Other)
  Sender: FDA-Public Use
  Company Number: US-JNJFOC-20081106109

PATIENT
  Sex: Female

DRUGS (11)
  1. IBUPROFEN [Suspect]
     Indication: HERPES ZOSTER
     Dosage: 600 MG, 3 IN 1 DAY
     Dates: start: 20081031
  2. CHANTIX [Suspect]
     Indication: DRUG USE FOR UNKNOWN INDICATION
     Dates: start: 20080801
  3. LYRICA [Suspect]
     Indication: DRUG USE FOR UNKNOWN INDICATION
     Dosage: 75 MG, 1 IN 1 HOUR OF SLEEP
     Dates: start: 20081105
  4. METHYLPREDNISOLONE [Suspect]
     Indication: HERPES ZOSTER
     Dates: start: 20081031
  5. LORTAB (VICODIN) [Concomitant]
  6. LIDDOERM (LIDOCAINE) [Concomitant]
  7. VITAMIN A [Concomitant]
  8. VITAMIN E [Concomitant]
  9. MULTIVITAMIN [Concomitant]
  10. ALPHA LIPOIC ACID (THIOCTIC ACID) [Concomitant]
  11. L-LYSINE (LYSINE) [Concomitant]

REACTIONS (3)
  - HYPERHIDROSIS [None]
  - PRESYNCOPE [None]
  - UTERINE HAEMORRHAGE [None]
